FAERS Safety Report 8932364 (Version 1)
Quarter: 2012Q4

REPORT INFORMATION
  Report Type: 
  Country: FR (occurrence: FR)
  Receive Date: 20121128
  Receipt Date: 20121128
  Transmission Date: 20130627
  Serious: Yes (Other)
  Sender: FDA-Public Use
  Company Number: FR-JNJFOC-20121110876

PATIENT
  Age: 3 None
  Sex: Female

DRUGS (1)
  1. EVRA [Suspect]
     Indication: CONTRACEPTION
     Route: 062

REACTIONS (4)
  - Foetal death [Recovered/Resolved]
  - Pregnancy with contraceptive patch [Recovered/Resolved]
  - Exposure during pregnancy [Recovered/Resolved]
  - Product quality issue [Unknown]
